FAERS Safety Report 9535508 (Version 5)
Quarter: 2014Q1

REPORT INFORMATION
  Report Type: Report from Study
  Country: IT (occurrence: IT)
  Receive Date: 20130918
  Receipt Date: 20140312
  Transmission Date: 20141002
  Serious: Yes (Disabling)
  Sender: FDA-Public Use
  Company Number: IT-ROCHE-1272036

PATIENT
  Age: 74 Year
  Sex: Male
  Weight: 130 kg

DRUGS (7)
  1. VISMODEGIB [Suspect]
     Indication: BASAL CELL CARCINOMA
     Dosage: LAST DOSE PRIOR TO SAE WAS 04/AUG/2013, DISCONTINUED
     Route: 048
     Dates: start: 20130418, end: 20130804
  2. LANTUS [Concomitant]
     Indication: DIABETES MELLITUS
     Route: 065
     Dates: start: 199506
  3. NOVORAPID [Concomitant]
     Indication: DIABETES MELLITUS
     Route: 065
     Dates: start: 199506
  4. METFORMIN [Concomitant]
     Indication: DIABETES MELLITUS
     Route: 065
     Dates: start: 199506
  5. ISOPTIN [Concomitant]
     Indication: HYPERTENSION
     Route: 065
     Dates: start: 200809
  6. LASIX [Concomitant]
     Indication: HYPERTENSION
     Dosage: HALF 25MG CPR A DAY
     Route: 065
     Dates: start: 200809
  7. COUMADIN [Concomitant]
     Dosage: HALF A DOSE A DAY?INDICATION:PREVENTION OF THROMBOEMBOLIC EVENTS
     Route: 065
     Dates: start: 200809

REACTIONS (1)
  - Asthenia [Recovered/Resolved]
